FAERS Safety Report 13042531 (Version 1)
Quarter: 2016Q4

REPORT INFORMATION
  Report Type: Spontaneous
  Country: US (occurrence: US)
  Receive Date: 20161219
  Receipt Date: 20161219
  Transmission Date: 20170207
  Serious: No
  Sender: FDA-Public Use
  Company Number: US-LANNETT COMPANY, INC.-1061001

PATIENT
  Age: 77 Year
  Sex: Female

DRUGS (4)
  1. LEVOTHYROXINE SODIUM. [Concomitant]
     Active Substance: LEVOTHYROXINE SODIUM
     Route: 048
  2. SPIRONOLACTONE. [Concomitant]
     Active Substance: SPIRONOLACTONE
  3. GABAPENTIN. [Concomitant]
     Active Substance: GABAPENTIN
  4. BACLOFEN. [Suspect]
     Active Substance: BACLOFEN
     Indication: MUSCLE SPASMS
     Route: 048
     Dates: start: 20160918

REACTIONS (3)
  - Drug ineffective [Unknown]
  - Device issue [None]
  - Wrong technique in product usage process [None]

NARRATIVE: CASE EVENT DATE: 20160918
